FAERS Safety Report 9270553 (Version 1)
Quarter: 2013Q2

REPORT INFORMATION
  Report Type: Spontaneous
  Country: HR (occurrence: HR)
  Receive Date: 20130505
  Receipt Date: 20130505
  Transmission Date: 20140414
  Serious: Yes (Other)
  Sender: FDA-Public Use
  Company Number: PHHY2013HR042639

PATIENT
  Age: 83 Year
  Sex: Male

DRUGS (3)
  1. PRAMIPEXOLE [Suspect]
     Dosage: 3 MG, UNK
  2. WARFARIN SODIUM [Suspect]
  3. CARVEDILOL [Concomitant]

REACTIONS (10)
  - Bradycardia [Recovered/Resolved]
  - Asthenia [Recovered/Resolved]
  - Hypotension [Recovered/Resolved]
  - Pallor [Recovered/Resolved]
  - Cold sweat [Recovered/Resolved]
  - Nausea [Recovered/Resolved]
  - Vomiting [Recovered/Resolved]
  - Incorrect dose administered [Unknown]
  - Drug administration error [Unknown]
  - Incorrect dose administered [None]
